FAERS Safety Report 8383715-2 (Version None)
Quarter: 2012Q2

REPORT INFORMATION
  Report Type: 
  Country: None (occurrence: None)
  Receive Date: 20120524
  Receipt Date: 20120206
  Transmission Date: 20120825
  Serious: Yes (Death)
  Sender: FDA-Public Use
  Company Number: US-ROCHE-1037627

PATIENT
  Sex: Female
  Weight: 72.8 kg

DRUGS (1)
  1. ZELBORAF [Suspect]
     Indication: MALIGNANT MELANOMA
     Route: 048
     Dates: start: 20120103

REACTIONS (2)
  - MALIGNANT MELANOMA [None]
  - INTESTINAL PERFORATION [None]
